FAERS Safety Report 17430717 (Version 7)
Quarter: 2021Q1

REPORT INFORMATION
  Report Type: Spontaneous
  Country: US (occurrence: US)
  Receive Date: 20200218
  Receipt Date: 20210318
  Transmission Date: 20210419
  Serious: Yes (Hospitalization, Other)
  Sender: FDA-Public Use
  Company Number: US-BIOCODEX SA-201901689

PATIENT

DRUGS (16)
  1. CLOBAZAM. [Concomitant]
     Active Substance: CLOBAZAM
     Indication: SEVERE MYOCLONIC EPILEPSY OF INFANCY
     Route: 065
  2. CLOBAZAM. [Concomitant]
     Active Substance: CLOBAZAM
     Indication: SEVERE MYOCLONIC EPILEPSY OF INFANCY
  3. DIACOMIT [Suspect]
     Active Substance: STIRIPENTOL
     Dosage: 1000MG A.M. AND 1500MG P.M.
     Route: 065
  4. CLONAZEPAM. [Concomitant]
     Active Substance: CLONAZEPAM
     Indication: PRODUCT USED FOR UNKNOWN INDICATION
     Route: 065
  5. DIACOMIT [Suspect]
     Active Substance: STIRIPENTOL
     Dosage: 2 CAPSULES OF 500MG TWICE DAILY
     Route: 065
     Dates: start: 20190911
  6. DIACOMIT [Suspect]
     Active Substance: STIRIPENTOL
     Dosage: 1000MG A.M. AND 1250MG P.M.
     Route: 048
  7. BRIVIACT [Concomitant]
     Active Substance: BRIVARACETAM
     Indication: PRODUCT USED FOR UNKNOWN INDICATION
  8. DIACOMIT [Suspect]
     Active Substance: STIRIPENTOL
     Indication: SEVERE MYOCLONIC EPILEPSY OF INFANCY
     Dosage: 250MG TWICE DAILY
     Route: 065
     Dates: start: 20190909
  9. DIACOMIT [Suspect]
     Active Substance: STIRIPENTOL
     Dosage: 500MG, TAKE 3 CAPSULES BY MOUTH EVERY MORNING AND TAKE 3 CAPSULES EVERY EVENING.
     Route: 048
  10. EPIDIOLEX [Concomitant]
     Active Substance: CANNABIDIOL
     Indication: PRODUCT USED FOR UNKNOWN INDICATION
     Route: 065
  11. LAMICTAL [Concomitant]
     Active Substance: LAMOTRIGINE
     Indication: PRODUCT USED FOR UNKNOWN INDICATION
  12. DELTA(9)?TETRAHYDROCANNABINOLIC ACID [Concomitant]
     Active Substance: DELTA(9)-TETRAHYDROCANNABINOLIC ACID
     Indication: PRODUCT USED FOR UNKNOWN INDICATION
  13. VALIUM [Concomitant]
     Active Substance: DIAZEPAM
     Indication: PRODUCT USED FOR UNKNOWN INDICATION
  14. DIACOMIT [Suspect]
     Active Substance: STIRIPENTOL
     Dosage: EVERY DAY
     Route: 065
     Dates: start: 202011
  15. DIACOMIT [Suspect]
     Active Substance: STIRIPENTOL
     Dosage: 1000MG A.M. AND 1250MG P.M.
     Route: 048
  16. TOPAMAX [Concomitant]
     Active Substance: TOPIRAMATE
     Indication: PRODUCT USED FOR UNKNOWN INDICATION
     Route: 065

REACTIONS (9)
  - Seizure [Unknown]
  - Vomiting [Unknown]
  - Weight decreased [Unknown]
  - Dizziness [Recovered/Resolved]
  - Insomnia [Unknown]
  - Agitation [Recovered/Resolved]
  - Anger [Recovered/Resolved]
  - Depression [Unknown]
  - Decreased appetite [Not Recovered/Not Resolved]

NARRATIVE: CASE EVENT DATE: 202011
